FAERS Safety Report 21641231 (Version 1)
Quarter: 2022Q4

REPORT INFORMATION
  Report Type: Spontaneous
  Country: CZ (occurrence: CZ)
  Receive Date: 20221125
  Receipt Date: 20221125
  Transmission Date: 20230113
  Serious: Yes (Other)
  Sender: FDA-Public Use
  Company Number: CZ-ABBVIE-4202397

PATIENT
  Sex: Female

DRUGS (6)
  1. VENETOCLAX [Suspect]
     Active Substance: VENETOCLAX
     Indication: Chronic lymphocytic leukaemia
     Dosage: MOST RECENT DOSE ADMINISTERED ON 12/MAR/2017
     Route: 065
     Dates: start: 20150223
  2. RITUXIMAB [Suspect]
     Active Substance: RITUXIMAB
     Indication: Chronic lymphocytic leukaemia
     Route: 065
     Dates: start: 201103, end: 201108
  3. RITUXIMAB [Suspect]
     Active Substance: RITUXIMAB
     Dosage: 6 CYCLES, MOST RECENT DOSE ADMINISTERED ON 12/MAR/2017
     Route: 065
     Dates: start: 20150223
  4. PREDNISONE [Concomitant]
     Active Substance: PREDNISONE
     Indication: Product used for unknown indication
     Dates: start: 201103, end: 201108
  5. PREDNISONE [Concomitant]
     Active Substance: PREDNISONE
     Dates: start: 201409, end: 201410
  6. PREDNISONE [Concomitant]
     Active Substance: PREDNISONE
     Dates: end: 2019

REACTIONS (5)
  - Autoimmune haemolytic anaemia [Unknown]
  - Anaemia [Unknown]
  - Colectomy [Unknown]
  - Adenocarcinoma of colon [Unknown]
  - Haemolysis [Unknown]

NARRATIVE: CASE EVENT DATE: 20180201
